FAERS Safety Report 7830353-3 (Version None)
Quarter: 2011Q4

REPORT INFORMATION
  Report Type: 
  Country: None (occurrence: None)
  Receive Date: 20111021
  Receipt Date: 20111017
  Transmission Date: 20120403
  Serious: Yes (Hospitalization)
  Sender: FDA-Public Use
  Company Number: US-AMGEN-USASP2011042991

PATIENT
  Age: 63 Year
  Sex: Female
  Weight: 94.331 kg

DRUGS (7)
  1. ERGOCALCIFEROL [Concomitant]
     Dosage: UNK UNK, PRN
     Route: 048
  2. RETINOL ACETATE [Concomitant]
     Dosage: UNK
     Route: 048
  3. PREDNISONE ACETATE [Concomitant]
     Indication: RHEUMATOID ARTHRITIS
     Dosage: UNK UNK, PRN
     Route: 048
     Dates: start: 20090101
  4. ENBREL [Suspect]
     Indication: RHEUMATOID ARTHRITIS
     Dosage: UNK
     Dates: start: 20100101
  5. HUMIRA [Suspect]
     Indication: RHEUMATOID ARTHRITIS
     Dosage: 40 MG, Q2WK
     Route: 058
     Dates: start: 20110616, end: 20110714
  6. CALCIUM SANDOZ                     /00108001/ [Concomitant]
     Dosage: UNK
     Route: 048
  7. HYDROCHLOROTHIAZIDE [Concomitant]
     Indication: HYPERTENSION
     Dosage: UNK
     Route: 048

REACTIONS (5)
  - CHILLS [None]
  - CELLULITIS STAPHYLOCOCCAL [None]
  - GAIT DISTURBANCE [None]
  - PYREXIA [None]
  - HEADACHE [None]
